FAERS Safety Report 4295200-8 (Version None)
Quarter: 2004Q1

REPORT INFORMATION
  Report Type: 
  Country: None (occurrence: None)
  Receive Date: 20040216
  Receipt Date: 20040205
  Transmission Date: 20041129
  Serious: Yes (Other)
  Sender: FDA-Public Use
  Company Number: PHFR2004GB00924

PATIENT
  Age: 33 Year
  Sex: Male

DRUGS (1)
  1. DICLOFENAC SODIUM [Suspect]

REACTIONS (1)
  - CATARACT [None]
